FAERS Safety Report 5944048-4 (Version None)
Quarter: 2008Q4

REPORT INFORMATION
  Report Type: 
  Country: None (occurrence: None)
  Receive Date: 20081106
  Receipt Date: 20081030
  Transmission Date: 20090506
  Serious: Yes (Other)
  Sender: FDA-Public Use
  Company Number: US-B.I. PHARMACEUTICALS,INC./RIDGEFIELD-2008-BP-16644BP

PATIENT
  Age: 61 Year
  Sex: Female

DRUGS (3)
  1. DULCOLAX [Suspect]
     Indication: CONSTIPATION
     Dosage: 10MG
     Route: 048
     Dates: start: 20081027
  2. DULCOLAX [Suspect]
     Dosage: 10MG
     Route: 048
     Dates: start: 20081028
  3. CHEMOTHERAPY [Concomitant]
     Indication: NEOPLASM MALIGNANT

REACTIONS (3)
  - DRUG INEFFECTIVE [None]
  - INCORRECT DOSE ADMINISTERED [None]
  - NEOPLASM MALIGNANT [None]
